FAERS Safety Report 13733938 (Version 7)
Quarter: 2017Q4

REPORT INFORMATION
  Report Type: Spontaneous
  Country: US (occurrence: US)
  Receive Date: 20170707
  Receipt Date: 20171214
  Transmission Date: 20180320
  Serious: Yes (Other)
  Sender: FDA-Public Use
  Company Number: US-ACTELION-A-US2017-156372

PATIENT
  Age: 38 Year
  Sex: Male

DRUGS (4)
  1. ADCIRCA [Concomitant]
     Active Substance: TADALAFIL
  2. BACTRIM DS [Suspect]
     Active Substance: SULFAMETHOXAZOLE\TRIMETHOPRIM
     Indication: PRODUCT USED FOR UNKNOWN INDICATION
     Route: 065
  3. TOPAMAX [Concomitant]
     Active Substance: TOPIRAMATE
  4. OPSUMIT [Suspect]
     Active Substance: MACITENTAN
     Indication: PULMONARY ARTERIAL HYPERTENSION
     Dosage: 10 MG, QD
     Route: 048

REACTIONS (16)
  - Dizziness [Recovering/Resolving]
  - Ascites [Unknown]
  - Seizure [Recovered/Resolved]
  - Hernia [Unknown]
  - Feeling abnormal [Recovering/Resolving]
  - Sleep disorder [Unknown]
  - Fatigue [Unknown]
  - Dyspnoea [Unknown]
  - Dry mouth [Unknown]
  - Dyspnoea exertional [Unknown]
  - Chest pain [Unknown]
  - Oedema [Unknown]
  - Bilevel positive airway pressure [Unknown]
  - Headache [Unknown]
  - Loss of consciousness [Unknown]
  - Urinary tract infection [Unknown]

NARRATIVE: CASE EVENT DATE: 20171027
